FAERS Safety Report 15862830 (Version 1)
Quarter: 2019Q1

REPORT INFORMATION
  Report Type: Spontaneous
  Country: US (occurrence: US)
  Receive Date: 20190124
  Receipt Date: 20190124
  Transmission Date: 20190417
  Serious: No
  Sender: FDA-Public Use
  Company Number: None

PATIENT
  Sex: Female

DRUGS (2)
  1. VERAPAMIL [Suspect]
     Active Substance: VERAPAMIL HYDROCHLORIDE
  2. TOPAMAX [Suspect]
     Active Substance: TOPIRAMATE

REACTIONS (4)
  - Amnesia [None]
  - Speech disorder [None]
  - Disturbance in attention [None]
  - Headache [None]
